FAERS Safety Report 11184672 (Version 2)
Quarter: 2015Q2

REPORT INFORMATION
  Report Type: Report from Study
  Country: DE (occurrence: DE)
  Receive Date: 20150612
  Receipt Date: 20150612
  Transmission Date: 20150821
  Serious: Yes (Hospitalization)
  Sender: FDA-Public Use
  Company Number: DE-ABBVIE-15K-062-1402437-00

PATIENT
  Age: 71 Year
  Sex: Male

DRUGS (3)
  1. PREDNISOLONE. [Concomitant]
     Active Substance: PREDNISOLONE
     Indication: RHEUMATOID ARTHRITIS
  2. HUMIRA [Suspect]
     Active Substance: ADALIMUMAB
     Indication: RHEUMATOID ARTHRITIS
     Route: 058
     Dates: start: 20100302
  3. METHOTREXATE [Suspect]
     Active Substance: METHOTREXATE
     Indication: RHEUMATOID ARTHRITIS
     Route: 065

REACTIONS (20)
  - Neutrophil count increased [Unknown]
  - Lung disorder [Recovered/Resolved]
  - Alveolitis [Unknown]
  - Dyspnoea exertional [Unknown]
  - Productive cough [Unknown]
  - Bronchitis [Unknown]
  - Obliterative bronchiolitis [Unknown]
  - Granulocytosis [Unknown]
  - Pulmonary fibrosis [Unknown]
  - Obstructive airways disorder [Unknown]
  - Chronic obstructive pulmonary disease [Unknown]
  - Alveolar lung disease [Unknown]
  - Alveolitis allergic [Recovered/Resolved]
  - Obliterative bronchiolitis [Unknown]
  - Streptococcus test positive [Unknown]
  - Lung hyperinflation [Unknown]
  - Haemophilus test positive [Unknown]
  - Increased bronchial secretion [Unknown]
  - Rehabilitation therapy [Unknown]
  - Toxicity to various agents [Unknown]

NARRATIVE: CASE EVENT DATE: 201308
